FAERS Safety Report 13644694 (Version 1)
Quarter: 2017Q2

REPORT INFORMATION
  Report Type: Spontaneous
  Country: US (occurrence: US)
  Receive Date: 20170612
  Receipt Date: 20170612
  Transmission Date: 20170830
  Serious: No
  Sender: FDA-Public Use
  Company Number: US-ROCHE-1317863

PATIENT
  Sex: Female

DRUGS (1)
  1. XELODA [Suspect]
     Active Substance: CAPECITABINE
     Indication: BREAST CANCER
     Dosage: 3 TABS TWICE DAILY 14 DAYS ON, 7 DAYS OFF
     Route: 065
     Dates: start: 20131122

REACTIONS (3)
  - Pain in extremity [Unknown]
  - Fatigue [Unknown]
  - Nausea [Unknown]
